FAERS Safety Report 15886751 (Version 4)
Quarter: 2021Q1

REPORT INFORMATION
  Report Type: Spontaneous
  Country: JP (occurrence: JP)
  Receive Date: 20190129
  Receipt Date: 20210210
  Transmission Date: 20210419
  Serious: Yes (Death, Life-Threatening, Other)
  Sender: FDA-Public Use
  Company Number: JP-BRISTOL-MYERS SQUIBB COMPANY-BMS-2019-007683

PATIENT
  Age: 66 Year
  Sex: Male
  Weight: 50.4 kg

DRUGS (7)
  1. GASTER [Concomitant]
     Active Substance: FAMOTIDINE
     Indication: PRODUCT USED FOR UNKNOWN INDICATION
     Dosage: 20 MILLIGRAM
     Route: 042
     Dates: start: 20180223
  2. GRANISETRON [Concomitant]
     Active Substance: GRANISETRON
     Indication: PRODUCT USED FOR UNKNOWN INDICATION
     Dosage: 3 MILLIGRAM
     Route: 041
     Dates: start: 20180223, end: 20180223
  3. POLARAMINE [Concomitant]
     Active Substance: DEXCHLORPHENIRAMINE MALEATE
     Indication: PRODUCT USED FOR UNKNOWN INDICATION
     Dosage: 5 MILLIGRAM
     Route: 042
     Dates: start: 20180223
  4. PACLITAXEL. [Suspect]
     Active Substance: PACLITAXEL
     Indication: HEAD AND NECK CANCER
     Dosage: UNK
     Route: 041
     Dates: start: 20180216, end: 20180218
  5. PACLITAXEL. [Suspect]
     Active Substance: PACLITAXEL
     Dosage: 152.1 MILLIGRAM
     Route: 041
     Dates: start: 20180223, end: 20180223
  6. DEXART [Concomitant]
     Active Substance: DEXAMETHASONE SODIUM PHOSPHATE
     Indication: PRODUCT USED FOR UNKNOWN INDICATION
     Dosage: 6.6 MILLIGRAM
     Route: 042
     Dates: start: 20180223
  7. OPDIVO [Suspect]
     Active Substance: NIVOLUMAB
     Indication: HEAD AND NECK CANCER
     Dosage: 137.7 MILLIGRAM
     Route: 041
     Dates: start: 20170810

REACTIONS (2)
  - Septic shock [Fatal]
  - Febrile neutropenia [Fatal]

NARRATIVE: CASE EVENT DATE: 20180225
